FAERS Safety Report 9154335 (Version 1)
Quarter: 2013Q1

REPORT INFORMATION
  Report Type: Spontaneous
  Country: GB (occurrence: None)
  Receive Date: 20130205
  Receipt Date: 20130205
  Transmission Date: 20140127
  Serious: Yes (Other)
  Sender: FDA-Public Use
  Company Number: GER/UKI/13/027726

PATIENT
  Age: 73 Year
  Sex: Male
  Weight: 135 kg

DRUGS (10)
  1. CLOPIDOGREL (CLOPIDOGREL) [Suspect]
     Indication: HEART DISEASE CONGENITAL
     Route: 048
     Dates: start: 20120404
  2. AMLODIPINE (AMLODIPINE) [Concomitant]
  3. ASPIRIN (ACETYLSALICYLIC ACID) [Concomitant]
  4. ATORVASTATIN (ATORVASTATIN) [Concomitant]
  5. BENDROFLUMETHIAZIDE (BENDROFLUMETHIAZIDE) [Concomitant]
  6. BISOPROLOL (BISOPROLOL) [Concomitant]
  7. FINASTERIDE (FINASTERIDE) [Concomitant]
  8. FYBOGEL (PLANTAGO OVATA) [Concomitant]
  9. OMEPRAZOLE (OMEPRAZOLE) [Concomitant]
  10. SOLPADEINE MAX (PAPADEINE CO) [Concomitant]

REACTIONS (2)
  - Headache [None]
  - Fatigue [None]
